FAERS Safety Report 6283181-7 (Version None)
Quarter: 2009Q3

REPORT INFORMATION
  Report Type: 
  Country: None (occurrence: None)
  Receive Date: 20090724
  Receipt Date: 20090720
  Transmission Date: 20100115
  Serious: Yes (Hospitalization)
  Sender: FDA-Public Use
  Company Number: B0584730A

PATIENT
  Sex: Male

DRUGS (5)
  1. AUGMENTIN '125' [Suspect]
     Indication: DRUG USE FOR UNKNOWN INDICATION
     Dosage: 3G PER DAY
     Route: 048
     Dates: start: 20080108, end: 20080219
  2. LASILIX FAIBLE [Concomitant]
     Dosage: 60MG PER DAY
     Route: 048
     Dates: start: 20080111, end: 20080219
  3. BENERVA [Concomitant]
     Dosage: 750MG PER DAY
     Route: 048
     Dates: start: 20080108, end: 20080219
  4. SPECIAFOLDINE [Concomitant]
     Dosage: 15MG PER DAY
     Route: 048
     Dates: end: 20090219
  5. NITRODERM [Concomitant]
     Route: 062
     Dates: end: 20080219

REACTIONS (1)
  - FUNGAL INFECTION [None]
